FAERS Safety Report 26076572 (Version 1)
Quarter: 2025Q4

REPORT INFORMATION
  Report Type: Spontaneous
  Country: EU (occurrence: EU)
  Receive Date: 20251121
  Receipt Date: 20251121
  Transmission Date: 20260118
  Serious: Yes (Other)
  Sender: MEDEXUS PHARMA
  Company Number: EU-MEDEXUS PHARMA, INC.-2025MED00400

PATIENT
  Age: 84 Year
  Sex: Female

DRUGS (3)
  1. METHOTREXATE [Suspect]
     Active Substance: METHOTREXATE
     Indication: Enteropathy-associated T-cell lymphoma
     Dosage: UNK, 1X/WEEK
  2. METHOTREXATE [Suspect]
     Active Substance: METHOTREXATE
     Dosage: 3 GRAM PER SQUARE METRE; D1, D15
     Route: 042
  3. TEMOZOLOMIDE [Concomitant]
     Active Substance: TEMOZOLOMIDE
     Indication: Enteropathy-associated T-cell lymphoma
     Dosage: 150 MG/M2, EVERY 4 WEEKS
     Route: 048

REACTIONS (1)
  - Corneal toxicity [Not Recovered/Not Resolved]
